FAERS Safety Report 17063351 (Version 1)
Quarter: 2019Q4

REPORT INFORMATION
  Report Type: Spontaneous
  Country: US (occurrence: US)
  Receive Date: 20191122
  Receipt Date: 20191122
  Transmission Date: 20200122
  Serious: No
  Sender: FDA-Public Use
  Company Number: None

PATIENT
  Age: 23 Year
  Sex: Female
  Weight: 81 kg

DRUGS (2)
  1. MONISTAT COMPLETE CARE INSTANT ITCH RELIEF [Suspect]
     Active Substance: HYDROCORTISONE
     Indication: VULVOVAGINAL PRURITUS
     Dates: start: 20191119, end: 20191120
  2. MONISTAT COMPLETE CARE INSTANT ITCH RELIEF [Suspect]
     Active Substance: HYDROCORTISONE
     Indication: VULVOVAGINAL BURNING SENSATION
     Dates: start: 20191119, end: 20191120

REACTIONS (3)
  - Application site vesicles [None]
  - Application site swelling [None]
  - Dysuria [None]
